FAERS Safety Report 8330004-8 (Version None)
Quarter: 2012Q2

REPORT INFORMATION
  Report Type: 
  Country: None (occurrence: None)
  Receive Date: 20120502
  Receipt Date: 20120427
  Transmission Date: 20120825
  Serious: Yes (Death, Hospitalization, Other)
  Sender: FDA-Public Use
  Company Number: US-PFIZER INC-2012105067

PATIENT
  Age: 77 Year
  Sex: Female

DRUGS (1)
  1. VFEND [Suspect]
     Dosage: UNK

REACTIONS (4)
  - PNEUMONIA [None]
  - RENAL FAILURE CHRONIC [None]
  - HERPES ZOSTER [None]
  - LUNG NEOPLASM MALIGNANT [None]
